FAERS Safety Report 17432757 (Version 2)
Quarter: 2020Q1

REPORT INFORMATION
  Report Type: Spontaneous
  Country: NL (occurrence: NL)
  Receive Date: 20200218
  Receipt Date: 20200229
  Transmission Date: 20200409
  Serious: Yes (Other)
  Sender: FDA-Public Use
  Company Number: NL-AUROBINDO-AUR-APL-2019-070242

PATIENT
  Age: 7 Year
  Sex: Male

DRUGS (18)
  1. CILASTATIN;IMIPENEM [Suspect]
     Active Substance: CILASTATIN SODIUM\IMIPENEM
     Indication: MYCOBACTERIUM ABSCESSUS INFECTION
     Dosage: 3 GTT DROPS, 3 TIMES A DAY (5/5 MG/ML)
     Route: 061
  2. TIGECYCLINE. [Suspect]
     Active Substance: TIGECYCLINE
     Indication: MASTOIDITIS
     Dosage: 3 GTT DROPS, 3 TIMES A DAY (9 DROPS,QD)
     Route: 061
  3. CLOFAZIMINE [Suspect]
     Active Substance: CLOFAZIMINE
     Indication: MYCOBACTERIUM ABSCESSUS INFECTION
     Dosage: 50 MILLIGRAM, ONCE A DAY (IF WEIGHT IS ABOVE 40 KG THEN 100 MG)
     Route: 048
  4. TIGECYCLINE. [Suspect]
     Active Substance: TIGECYCLINE
     Indication: MYCOBACTERIUM ABSCESSUS INFECTION
     Dosage: 2.4 MILLIGRAM/KILOGRAM, ONCE A DAY IN 2 DOSES
     Route: 042
  5. CILASTATIN;IMIPENEM [Suspect]
     Active Substance: CILASTATIN SODIUM\IMIPENEM
     Indication: MYCOBACTERIUM ABSCESSUS INFECTION
     Dosage: 60 MILLIGRAM/KILOGRAM, DAILY (IN 2 TO 4 DOSES)
     Route: 042
  6. TIGECYCLINE. [Suspect]
     Active Substance: TIGECYCLINE
     Indication: MASTOIDITIS
     Dosage: 2.4 MILLIGRAM/KILOGRAM, ONCE A DAY IN 2 DOSES
     Route: 042
  7. TIGECYCLINE. [Suspect]
     Active Substance: TIGECYCLINE
     Indication: MYCOBACTERIUM ABSCESSUS INFECTION
  8. CLOFAZIMINE [Suspect]
     Active Substance: CLOFAZIMINE
     Indication: MASTOIDITIS
  9. TIGECYCLINE. [Suspect]
     Active Substance: TIGECYCLINE
     Dosage: UNK
     Route: 065
  10. SODIUM CHLORIDE 0.9% [Concomitant]
     Active Substance: SODIUM CHLORIDE
     Indication: PRODUCT USED FOR UNKNOWN INDICATION
     Dosage: UNK
     Route: 065
  11. CILASTATIN;IMIPENEM [Suspect]
     Active Substance: CILASTATIN SODIUM\IMIPENEM
     Indication: MASTOIDITIS
  12. AZITHROMYCIN ANHYDROUS. [Suspect]
     Active Substance: AZITHROMYCIN ANHYDROUS
     Indication: MYCOBACTERIUM ABSCESSUS INFECTION
     Dosage: 10 MILLIGRAM/KILOGRAM, ONCE A DAY
     Route: 048
  13. MINOCYCLINE [Suspect]
     Active Substance: MINOCYCLINE HYDROCHLORIDE
     Indication: MYCOBACTERIUM ABSCESSUS INFECTION
     Dosage: UNK
     Route: 065
  14. CLOFAZIMINE [Suspect]
     Active Substance: CLOFAZIMINE
     Indication: MASTOIDITIS
     Dosage: UNK
     Route: 065
  15. TIGECYCLINE. [Suspect]
     Active Substance: TIGECYCLINE
     Dosage: REDUCED DOSE
     Route: 042
  16. AZITHROMYCIN ANHYDROUS. [Suspect]
     Active Substance: AZITHROMYCIN ANHYDROUS
     Indication: MASTOIDITIS
  17. CILASTATIN;IMIPENEM [Suspect]
     Active Substance: CILASTATIN SODIUM\IMIPENEM
     Indication: MASTOIDITIS
     Dosage: UNK
     Route: 065
  18. GRANISETRON [Suspect]
     Active Substance: GRANISETRON
     Indication: PROPHYLAXIS OF NAUSEA AND VOMITING
     Dosage: UNK
     Route: 065

REACTIONS (10)
  - Hepatotoxicity [Unknown]
  - Nausea [Unknown]
  - Hypertriglyceridaemia [Unknown]
  - Product administered to patient of inappropriate age [Unknown]
  - Blood cholesterol increased [Unknown]
  - Vomiting [Unknown]
  - Feeding disorder [Unknown]
  - Product use in unapproved indication [Unknown]
  - Poor feeding infant [Unknown]
  - Decreased appetite [Unknown]
